FAERS Safety Report 23351883 (Version 1)
Quarter: 2023Q4

REPORT INFORMATION
  Report Type: Spontaneous
  Country: US (occurrence: None)
  Receive Date: 20231229
  Receipt Date: 20231229
  Transmission Date: 20240109
  Serious: No
  Sender: FDA-Public Use
  Company Number: None

PATIENT
  Age: 28 Year
  Sex: Male
  Weight: 78.93 kg

DRUGS (2)
  1. SUBLOCADE [Suspect]
     Active Substance: BUPRENORPHINE
     Indication: Drug dependence
     Dosage: 300MG/1.5ML Q 28 DAYS SUBCUTANEOUSLY  ?UNIT: PRE-FILLED SYNNAC?DURATION ONCE  ?UNIT: 1.5ML
     Route: 058
     Dates: start: 20231204, end: 20231204
  2. CHLORHEXIDINE GLUCONATE [Suspect]
     Active Substance: CHLORHEXIDINE GLUCONATE

REACTIONS (3)
  - Injection site pain [None]
  - Injection site erythema [None]
  - Injection site inflammation [None]

NARRATIVE: CASE EVENT DATE: 20231204
